FAERS Safety Report 25500274 (Version 1)
Quarter: 2025Q3

REPORT INFORMATION
  Report Type: Other
  Country: CA (occurrence: CA)
  Receive Date: 20250701
  Receipt Date: 20250701
  Transmission Date: 20251021
  Serious: Yes (Other)
  Sender: LANTHEUS MEDICAL IMAGING
  Company Number: CA-LANTHEUS-LMI-2025-00845

PATIENT
  Age: 82 Year
  Sex: Female

DRUGS (1)
  1. CARDIOLITE [Suspect]
     Active Substance: TECHNETIUM TC-99M SESTAMIBI
     Indication: Imaging procedure
     Route: 042

REACTIONS (6)
  - Malaise [Unknown]
  - Pallor [Unknown]
  - Tremor [Unknown]
  - Blood pressure decreased [Unknown]
  - Dizziness [Unknown]
  - Fatigue [Unknown]
